FAERS Safety Report 5833942-0 (Version None)
Quarter: 2008Q3

REPORT INFORMATION
  Report Type: 
  Country: None (occurrence: None)
  Receive Date: 20080805
  Receipt Date: 20080801
  Transmission Date: 20090109
  Serious: Yes (Hospitalization)
  Sender: FDA-Public Use
  Company Number: D0057695A

PATIENT
  Age: 55 Year
  Sex: Female

DRUGS (1)
  1. ZYBAN [Suspect]
     Indication: NICOTINE DEPENDENCE
     Route: 048
     Dates: start: 20080101, end: 20080501

REACTIONS (2)
  - PRURITUS [None]
  - PSORIASIS [None]
